FAERS Safety Report 7043256-1 (Version None)
Quarter: 2010Q4

REPORT INFORMATION
  Report Type: 
  Country: None (occurrence: None)
  Receive Date: 20101013
  Receipt Date: 20100512
  Transmission Date: 20110411
  Serious: No
  Sender: FDA-Public Use
  Company Number: US-ASTRAZENECA-2010SE21739

PATIENT
  Age: 24599 Day
  Sex: Male
  Weight: 90.7 kg

DRUGS (5)
  1. SYMBICORT [Suspect]
     Dosage: 80/4.5 UG 2 PUFFS BID
     Route: 055
     Dates: start: 20100415, end: 20100507
  2. ALBUTEROL [Concomitant]
     Route: 065
  3. ATROVENT [Concomitant]
     Route: 065
  4. XANAX [Concomitant]
     Dosage: AS REQUIRED
     Route: 065
  5. VICODIN [Concomitant]
     Dosage: AS REQUIRED
     Route: 065

REACTIONS (2)
  - ABDOMINAL PAIN [None]
  - DYSGEUSIA [None]
